FAERS Safety Report 11472075 (Version 3)
Quarter: 2015Q4

REPORT INFORMATION
  Report Type: Report from Study
  Country: US (occurrence: US)
  Receive Date: 20150908
  Receipt Date: 20151027
  Transmission Date: 20160304
  Serious: No
  Sender: FDA-Public Use
  Company Number: US-NPS_PHARMACEUTICALS-002020

PATIENT
  Sex: Female

DRUGS (3)
  1. TPN [Concomitant]
     Active Substance: AMINO ACIDS\DEXTROSE\ELECTROLYTES NOS\SOYBEAN OIL
     Indication: MEDICAL DIET
     Dosage: DF
  2. GATTEX [Suspect]
     Active Substance: TEDUGLUTIDE\WATER
     Indication: SHORT-BOWEL SYNDROME
     Route: 058
     Dates: start: 20130521
  3. GATTEX [Suspect]
     Active Substance: TEDUGLUTIDE\WATER
     Route: 058
     Dates: start: 2015, end: 2015

REACTIONS (3)
  - Diarrhoea [Not Recovered/Not Resolved]
  - Faecal incontinence [Unknown]
  - Therapy change [Unknown]

NARRATIVE: CASE EVENT DATE: 2015
